FAERS Safety Report 6045773-X (Version None)
Quarter: 2009Q1

REPORT INFORMATION
  Report Type: 
  Country: None (occurrence: None)
  Receive Date: 20090121
  Receipt Date: 20090115
  Transmission Date: 20090719
  Serious: Yes (Hospitalization)
  Sender: FDA-Public Use
  Company Number: US-ABBOTT-07P-163-0371367-00

PATIENT
  Sex: Female
  Weight: 87.3 kg

DRUGS (3)
  1. HUMIRA [Suspect]
     Indication: PSORIASIS
     Route: 050
     Dates: start: 20050809, end: 20070612
  2. HUMIRA [Suspect]
     Dates: start: 20070829
  3. BENAZEPRIL HYDROCHLORIDE [Concomitant]
     Indication: HYPERTENSION
     Route: 048
     Dates: start: 20061227

REACTIONS (1)
  - SUBARACHNOID HAEMORRHAGE [None]
